FAERS Safety Report 7784624-X (Version None)
Quarter: 2011Q3

REPORT INFORMATION
  Report Type: 
  Country: None (occurrence: None)
  Receive Date: 20110928
  Receipt Date: 20110914
  Transmission Date: 20111222
  Serious: Yes (Hospitalization)
  Sender: FDA-Public Use
  Company Number: LU-MYLANLABS-2011S1019629

PATIENT
  Age: 51 Year
  Sex: Male

DRUGS (7)
  1. GELATIN [Concomitant]
     Indication: HYPOTENSION
     Dosage: INFUSION
     Route: 065
  2. ZOLPIDEM [Concomitant]
     Indication: SEDATION
     Dosage: 10MG
     Route: 065
  3. MIDAZOLAM HCL [Concomitant]
     Dosage: 2MG
     Route: 065
  4. NITROGLYCERIN [Suspect]
  5. DICLOFENAC [Concomitant]
     Indication: PAIN
     Route: 065
  6. CATAPRESAN [Concomitant]
     Route: 065
  7. MEPERIDINE HCL [Concomitant]
     Indication: CHILLS
     Route: 042

REACTIONS (1)
  - POSTERIOR REVERSIBLE ENCEPHALOPATHY SYNDROME [None]
